FAERS Safety Report 6109359 (Version 12)
Quarter: 2012Q4

REPORT INFORMATION
  Report Type: 
  Country: GB (occurrence: GB)
  Receive Date: 20060817
  Receipt Date: 20120831
  Transmission Date: 20130627
  Serious: Yes (Hospitalization, Other)
  Sender: FDA-Public Use
  Company Number: PHFR2006GB02286

PATIENT
  Age: 35 Year
  Sex: Female

DRUGS (17)
  1. CLOZARIL [Suspect]
     Indication: SCHIZOPHRENIA
     Dosage: 250 mg, QD
     Route: 048
     Dates: start: 200505, end: 20050519
  2. CLOZARIL [Suspect]
     Dosage: 250 mg, QD
     Route: 048
     Dates: start: 20060605, end: 20060713
  3. CLOZARIL [Suspect]
     Dosage: 250 mg, daily
     Route: 048
     Dates: start: 20080519
  4. CLOZARIL [Suspect]
     Route: 048
     Dates: start: 20080605
  5. DIAZEPAM [Suspect]
     Dosage: UNK UKN, PRN
  6. ZOPICLONE [Suspect]
     Dosage: 3.75 mg, QHS
     Route: 065
  7. PERINDOPRIL [Suspect]
     Dosage: 2 mg, QD
     Route: 048
  8. ZOTON [Suspect]
     Dosage: 30 mg, QD
     Route: 048
  9. FERROUS SULFATE [Suspect]
     Dosage: 200 mg, BID
     Route: 048
  10. FOLIC ACID [Suspect]
     Dosage: 5 mg, QD
     Route: 048
  11. TRIMETHOPRIM [Suspect]
     Indication: URINARY TRACT INFECTION
     Dosage: UNK UKN, UNK
  12. LACTULOSE [Suspect]
     Dosage: 10 ml, PRN
     Route: 065
  13. FRUSEMIDE [Concomitant]
     Indication: HYPERTENSION
     Dosage: UNK UKN, UNK
     Route: 065
  14. RAMIPRIL [Concomitant]
     Indication: HYPERTENSION
     Dosage: UNK UKN, UNK
     Route: 048
  15. ATORVASTATIN [Concomitant]
     Dosage: UNK UKN, UNK
     Route: 065
  16. BENDROFLUAZIDE [Concomitant]
     Indication: HYPERTENSION
     Route: 065
  17. ABILIFY [Concomitant]
     Route: 065

REACTIONS (21)
  - Abdominal tenderness [Unknown]
  - Urinary tract infection [Unknown]
  - Cardiac murmur [Unknown]
  - Skin disorder [Recovered/Resolved]
  - Staphylococcal infection [Unknown]
  - White blood cell disorder [Unknown]
  - Malaise [Unknown]
  - Neutrophil count increased [Not Recovered/Not Resolved]
  - White blood cell count increased [Not Recovered/Not Resolved]
  - Iron deficiency anaemia [Unknown]
  - Mean cell volume decreased [Unknown]
  - Sinus tachycardia [Recovered/Resolved]
  - Constipation [Unknown]
  - Pyrexia [Recovered/Resolved]
  - Aggression [Unknown]
  - Hiatus hernia [Unknown]
  - Body mass index decreased [Unknown]
  - Diabetes mellitus [Unknown]
  - Thrombocytosis [Unknown]
  - Monocyte count increased [Unknown]
  - Hypertension [Unknown]
